FAERS Safety Report 4987582-6 (Version None)
Quarter: 2006Q2

REPORT INFORMATION
  Report Type: 
  Country: None (occurrence: None)
  Receive Date: 20060501
  Receipt Date: 20050907
  Transmission Date: 20061013
  Serious: Yes (Hospitalization)
  Sender: FDA-Public Use
  Company Number: GB-NOVOPROD-246724

PATIENT
  Age: 9 Year
  Sex: Male
  Weight: 31 kg

DRUGS (2)
  1. LEVEMIR [Suspect]
     Indication: DIABETES MELLITUS
     Dosage: 8 IU, QD
     Route: 058
     Dates: start: 20050606
  2. NOVORAPID PENFILL [Concomitant]
     Dosage: 9 IU, QD
     Route: 058

REACTIONS (2)
  - FALL [None]
  - HEAD INJURY [None]
